FAERS Safety Report 9510087 (Version 2)
Quarter: 2013Q4

REPORT INFORMATION
  Report Type: Spontaneous
  Country: US (occurrence: US)
  Receive Date: 20130909
  Receipt Date: 20131010
  Transmission Date: 20140711
  Serious: No
  Sender: FDA-Public Use
  Company Number: US-PFIZER INC-2013255591

PATIENT
  Age: 11 Year
  Sex: Male

DRUGS (3)
  1. GENOTROPIN [Suspect]
     Indication: PRADER-WILLI SYNDROME
     Dosage: 0.8 MG, UNK
  2. GENOTROPIN [Suspect]
     Dosage: 1.2 MG, UNK
  3. GENOTROPIN [Suspect]
     Dosage: (0.019MG/KG/DAY)

REACTIONS (1)
  - Headache [Unknown]
